FAERS Safety Report 10701418 (Version 1)
Quarter: 2014Q4

REPORT INFORMATION
  Report Type: Spontaneous
  Country: US (occurrence: None)
  Receive Date: 20141223
  Receipt Date: 20141223
  Transmission Date: 20150529
  Serious: No
  Sender: FDA-Public Use
  Company Number: 1000070442

PATIENT
  Age: 66 Year
  Sex: Female

DRUGS (6)
  1. FLEXERIL (CYCLOPENZAPRINE) [Concomitant]
  2. LINZESS [Suspect]
     Active Substance: LINACLOTIDE
     Indication: CONSTIPATION
     Route: 048
     Dates: start: 20140903
  3. LEVOTHYROXINE (LEVOTHYROXINE SODIUM) [Concomitant]
  4. KLONOPIN [Concomitant]
     Active Substance: CLONAZEPAM
  5. TRAMADOL [Concomitant]
     Active Substance: TRAMADOL
  6. CITALOPRAM (CITALOPRAM HYDROBROMIDE) [Concomitant]

REACTIONS (1)
  - Abdominal pain [None]

NARRATIVE: CASE EVENT DATE: 20140903
